FAERS Safety Report 13132098 (Version 1)
Quarter: 2017Q1

REPORT INFORMATION
  Report Type: Spontaneous
  Country: US (occurrence: US)
  Receive Date: 20170119
  Receipt Date: 20170119
  Transmission Date: 20170428
  Serious: Yes (Other)
  Sender: FDA-Public Use
  Company Number: US-ELI_LILLY_AND_COMPANY-US201608001015

PATIENT
  Sex: Female
  Weight: 68.4 kg

DRUGS (4)
  1. CYMBALTA [Suspect]
     Active Substance: DULOXETINE HYDROCHLORIDE
     Dosage: 30 MG, BID
     Route: 048
     Dates: start: 20131014
  2. DULOXETINE DR [Suspect]
     Active Substance: DULOXETINE
     Indication: PRODUCT USED FOR UNKNOWN INDICATION
     Dosage: 30 MG, BID
     Route: 048
     Dates: start: 20140220
  3. CYMBALTA [Suspect]
     Active Substance: DULOXETINE HYDROCHLORIDE
     Indication: PRODUCT USED FOR UNKNOWN INDICATION
     Dosage: 30 MG, QD
     Route: 048
     Dates: start: 20130912
  4. DULOXETINE DR [Suspect]
     Active Substance: DULOXETINE
     Dosage: 60 MG, BID
     Route: 048
     Dates: start: 20140602

REACTIONS (19)
  - Vertigo [Unknown]
  - Vomiting [Unknown]
  - Headache [Unknown]
  - Tremor [Unknown]
  - Visual impairment [Unknown]
  - Disturbance in attention [Unknown]
  - Paraesthesia [Unknown]
  - Memory impairment [Unknown]
  - Chest pain [Unknown]
  - Depression [Unknown]
  - Asthenia [Unknown]
  - Sleep disorder [Unknown]
  - Pain in extremity [Unknown]
  - Drug withdrawal syndrome [Unknown]
  - Dizziness [Unknown]
  - Nausea [Unknown]
  - Anxiety [Unknown]
  - Self-injurious ideation [Unknown]
  - Fatigue [Unknown]
